FAERS Safety Report 13493108 (Version 1)
Quarter: 2017Q2

REPORT INFORMATION
  Report Type: Spontaneous
  Country: PA (occurrence: PA)
  Receive Date: 20170427
  Receipt Date: 20170427
  Transmission Date: 20170830
  Serious: Yes (Other)
  Sender: FDA-Public Use
  Company Number: PA-ROCHE-1921732

PATIENT

DRUGS (2)
  1. HERCEPTIN [Suspect]
     Active Substance: TRASTUZUMAB
     Indication: PRODUCT USED FOR UNKNOWN INDICATION
     Route: 058
  2. KADCYLA [Suspect]
     Active Substance: ADO-TRASTUZUMAB EMTANSINE
     Indication: PRODUCT USED FOR UNKNOWN INDICATION
     Route: 042

REACTIONS (18)
  - Hypertension [Unknown]
  - Thrombocytopenia [Unknown]
  - Goitre [Unknown]
  - Umbilical hernia [Unknown]
  - Headache [Unknown]
  - Paraesthesia [Unknown]
  - Thrombophlebitis superficial [Unknown]
  - Lower respiratory tract infection [Unknown]
  - Cardiac disorder [Unknown]
  - Dyspnoea [Unknown]
  - Mouth haemorrhage [Unknown]
  - Upper gastrointestinal haemorrhage [Unknown]
  - Abdominal pain [Unknown]
  - Cardiac failure [Unknown]
  - Arthralgia [Unknown]
  - Peripheral swelling [Unknown]
  - Feeling hot [Unknown]
  - Rash [Unknown]
